FAERS Safety Report 21585790 (Version 1)
Quarter: 2022Q4

REPORT INFORMATION
  Report Type: Spontaneous
  Country: IN (occurrence: IN)
  Receive Date: 20221111
  Receipt Date: 20221111
  Transmission Date: 20230112
  Serious: Yes (Other)
  Sender: FDA-Public Use
  Company Number: IN-PFIZER INC-2019346001

PATIENT
  Age: 47 Year
  Sex: Male

DRUGS (7)
  1. SUTENT [Suspect]
     Active Substance: SUNITINIB MALATE
     Indication: Metastatic renal cell carcinoma
     Dosage: 50 MG, 1X/DAY
     Route: 048
     Dates: start: 20190430
  2. SUTENT [Suspect]
     Active Substance: SUNITINIB MALATE
     Dosage: 50 MG, 1X/DAY (2 WEEKS ON 1 WEEK OFF)
     Route: 048
     Dates: start: 201905
  3. SUTENT [Suspect]
     Active Substance: SUNITINIB MALATE
     Dosage: 50 MG, 1X/DAY (FOR 15DAYS ON AND 8DAYS)
     Route: 048
  4. SUTENT [Suspect]
     Active Substance: SUNITINIB MALATE
     Dosage: 50 MG, 1X/DAY (FOR 14DAYS (TO BE REPEATED WITH GAP OF 8 DAYS) X 6 MONTHS)
     Route: 048
     Dates: start: 2020
  5. SUTENT [Suspect]
     Active Substance: SUNITINIB MALATE
     Dosage: 37.5 MG, 14 DAYS (7 DAY OFF) X 6 MONTHS
     Route: 048
  6. LEVOTHYROXINE [Concomitant]
     Active Substance: LEVOTHYROXINE
     Dosage: 75 MG, DAILY (FOR 6 MONTHS)
  7. LEVOTHYROXINE [Concomitant]
     Active Substance: LEVOTHYROXINE
     Dosage: 100 UG, DAILY

REACTIONS (15)
  - Pyelocaliectasis [Unknown]
  - Dry skin [Unknown]
  - Fungal infection [Unknown]
  - Blood thyroid stimulating hormone increased [Not Recovered/Not Resolved]
  - Vitamin D decreased [Unknown]
  - Yellow skin [Unknown]
  - Pyrexia [Unknown]
  - Cough [Unknown]
  - Prostatomegaly [Unknown]
  - Neoplasm progression [Unknown]
  - Inguinal hernia [Unknown]
  - Oral pain [Unknown]
  - Renal hypertrophy [Unknown]
  - Platelet count decreased [Unknown]
  - Blood creatinine increased [Unknown]

NARRATIVE: CASE EVENT DATE: 20190515
